FAERS Safety Report 9385705 (Version 1)
Quarter: 2013Q3

REPORT INFORMATION
  Report Type: Spontaneous
  Country: US (occurrence: US)
  Receive Date: 20130705
  Receipt Date: 20130705
  Transmission Date: 20140515
  Serious: Yes (Hospitalization)
  Sender: FDA-Public Use
  Company Number: US-PFIZER INC-2013196706

PATIENT
  Age: 57 Year
  Sex: Female
  Weight: 60.77 kg

DRUGS (8)
  1. ERAXIS [Suspect]
     Indication: PERITONEAL ABSCESS
     Dosage: 100 MG, 1X/DAY
     Dates: end: 201303
  2. ERAXIS [Suspect]
     Indication: SEPSIS
  3. TYGACIL [Suspect]
     Indication: PERITONEAL ABSCESS
     Dosage: 100 MG, UNK
     Route: 042
     Dates: start: 20130419
  4. TYGACIL [Suspect]
     Indication: SEPSIS
     Dosage: 50 MG, EVERY TWELVE HOURS
     Route: 042
  5. TYGACIL [Suspect]
     Dosage: UNK
     Route: 042
     Dates: start: 20130605
  6. MYCAMINE [Suspect]
     Indication: PERITONEAL ABSCESS
     Dosage: 100 MG, 1X/DAY
     Dates: start: 20130305, end: 20130517
  7. MYCAMINE [Suspect]
     Indication: SEPSIS
  8. TOTAL PARENTERAL NUTRITION [Suspect]
     Indication: MALNUTRITION
     Dosage: UNK

REACTIONS (2)
  - Fistula [Unknown]
  - Blood urea increased [Recovered/Resolved]
